FAERS Safety Report 6377403-1 (Version None)
Quarter: 2009Q3

REPORT INFORMATION
  Report Type: 
  Country: None (occurrence: None)
  Receive Date: 20090923
  Receipt Date: 20090923
  Transmission Date: 20100115
  Serious: Yes (Life-Threatening)
  Sender: FDA-Public Use
  Company Number: None

PATIENT
  Sex: Female
  Weight: 76.7 kg

DRUGS (14)
  1. INSULIN GLARGINE [Suspect]
     Indication: DIABETES MELLITUS
     Dosage: 30 U HS SC
     Route: 058
     Dates: start: 20090815, end: 20090824
  2. INSULIN ASPART [Concomitant]
  3. TACROLIMUS [Concomitant]
  4. APAP TAB [Concomitant]
  5. PREDNISONE [Concomitant]
  6. NEUPOGEN [Concomitant]
  7. AMLODIPIME [Concomitant]
  8. ATENOLOL [Concomitant]
  9. FEXOFENASINE [Concomitant]
  10. LANSOPRAZOLE [Concomitant]
  11. LEVELAMER [Concomitant]
  12. AMOXICILLIN [Concomitant]
  13. LEVAFLOXACIN [Concomitant]
  14. OXYCODONE HCL [Concomitant]

REACTIONS (3)
  - CREATININE RENAL CLEARANCE DECREASED [None]
  - DISORIENTATION [None]
  - LABORATORY TEST ABNORMAL [None]
